FAERS Safety Report 6397965-8 (Version None)
Quarter: 2009Q4

REPORT INFORMATION
  Report Type: 
  Country: None (occurrence: None)
  Receive Date: 20091013
  Receipt Date: 20090930
  Transmission Date: 20100525
  Serious: Yes (Other)
  Sender: FDA-Public Use
  Company Number: CA-JNJFOC-20090800457

PATIENT
  Age: 29 Year
  Sex: Female

DRUGS (4)
  1. EXTRA STRENGTH TYLENOL [Suspect]
     Indication: DRUG USE FOR UNKNOWN INDICATION
     Route: 048
  2. MIDOL IB [Suspect]
     Indication: DRUG USE FOR UNKNOWN INDICATION
     Dosage: 6 TABLETS,
     Route: 048
  3. UNKNOWN MEDICATION [Suspect]
     Indication: DRUG USE FOR UNKNOWN INDICATION
     Dosage: PINE SOL LIQUID CLEANER, 2 SIPS
     Route: 065
  4. VALPROIC ACID [Concomitant]
     Route: 065

REACTIONS (8)
  - ACIDOSIS [None]
  - APNOEA [None]
  - COMA [None]
  - HYPERGLYCAEMIA [None]
  - HYPOKALAEMIA [None]
  - LACTIC ACIDOSIS [None]
  - OVERDOSE [None]
  - PNEUMONIA [None]
